FAERS Safety Report 13172361 (Version 1)
Quarter: 2017Q1

REPORT INFORMATION
  Report Type: Spontaneous
  Country: US (occurrence: US)
  Receive Date: 20170130
  Receipt Date: 20170130
  Transmission Date: 20170428
  Serious: Yes (Hospitalization)
  Sender: FDA-Public Use
  Company Number: None

PATIENT
  Age: 84 Year
  Sex: Male
  Weight: 60.24 kg

DRUGS (19)
  1. LIPITOR [Concomitant]
     Active Substance: ATORVASTATIN CALCIUM
  2. MINOCYCLINE HCL [Concomitant]
     Active Substance: MINOCYCLINE HYDROCHLORIDE
  3. COSOPT (DORZOLAMIDE HCL-TIMOLOL MAL) [Concomitant]
  4. POTASSIUM CITRATE ER [Concomitant]
  5. METOPROLOL SUCCINATE ER [Concomitant]
     Active Substance: METOPROLOL SUCCINATE
  6. CETUXIMAB. [Suspect]
     Active Substance: CETUXIMAB
     Indication: SQUAMOUS CELL CARCINOMA OF HEAD AND NECK
     Route: 042
     Dates: start: 20161109, end: 20170110
  7. ASPIRIN. [Concomitant]
     Active Substance: ASPIRIN
  8. MUCINEX [Concomitant]
     Active Substance: GUAIFENESIN
  9. LEVOTHYROXINE SODIUM. [Concomitant]
     Active Substance: LEVOTHYROXINE SODIUM
  10. PROCHLORPERAZINE MALEATE. [Concomitant]
     Active Substance: PROCHLORPERAZINE MALEATE
  11. XALATAN [Concomitant]
     Active Substance: LATANOPROST
  12. MIRTAZAPINE. [Concomitant]
     Active Substance: MIRTAZAPINE
  13. PALBOCICLIB [Suspect]
     Active Substance: PALBOCICLIB
     Indication: SQUAMOUS CELL CARCINOMA OF HEAD AND NECK
     Dosage: 125 MG QD DAYS 1-21 PO
     Route: 048
     Dates: start: 20161109, end: 20170115
  14. MULTI VITAMIN [Concomitant]
     Active Substance: VITAMINS
  15. SENNA S [Concomitant]
     Active Substance: DOCUSATE SODIUM\SENNA LEAF
  16. TOPROL XL [Concomitant]
     Active Substance: METOPROLOL SUCCINATE
  17. DEXAMETHASONE. [Concomitant]
     Active Substance: DEXAMETHASONE
  18. FAMOTIDINE. [Concomitant]
     Active Substance: FAMOTIDINE
  19. POLYETHYLENE GLYCOL [Concomitant]
     Active Substance: POLYETHYLENE GLYCOLS

REACTIONS (8)
  - Dyspnoea [None]
  - Thrombocytopenia [None]
  - Dizziness [None]
  - Dysphagia [None]
  - Blood potassium decreased [None]
  - Failure to thrive [None]
  - Drooling [None]
  - Haemoglobin decreased [None]

NARRATIVE: CASE EVENT DATE: 20170116
